FAERS Safety Report 7543095-9 (Version None)
Quarter: 2011Q2

REPORT INFORMATION
  Report Type: 
  Country: None (occurrence: None)
  Receive Date: 20110613
  Receipt Date: 20110608
  Transmission Date: 20111010
  Serious: No
  Sender: FDA-Public Use
  Company Number: US-PFIZER INC-2011126079

PATIENT
  Sex: Female
  Weight: 63.492 kg

DRUGS (1)
  1. ADVIL COLD AND SINUS [Suspect]
     Dosage: UNK
     Route: 048
     Dates: start: 20110605, end: 20110605

REACTIONS (1)
  - DIZZINESS [None]
